FAERS Safety Report 4594416-0 (Version None)
Quarter: 2005Q1

REPORT INFORMATION
  Report Type: 
  Country: None (occurrence: None)
  Receive Date: 20050223
  Receipt Date: 20050214
  Transmission Date: 20050727
  Serious: Yes (Hospitalization)
  Sender: FDA-Public Use
  Company Number: 2005029330

PATIENT
  Age: 37 Year
  Sex: Female
  Weight: 65.7716 kg

DRUGS (2)
  1. PROVERA [Suspect]
     Indication: UTERINE DILATION AND CURETTAGE
     Dates: start: 20050120, end: 20050129
  2. BUPROPION HYDROCHLORIDE [Concomitant]

REACTIONS (1)
  - SMALL INTESTINAL OBSTRUCTION [None]
